FAERS Safety Report 21544230 (Version 1)
Quarter: 2022Q4

REPORT INFORMATION
  Report Type: Spontaneous
  Country: PT (occurrence: PT)
  Receive Date: 20221102
  Receipt Date: 20221102
  Transmission Date: 20230112
  Serious: Yes (Other)
  Sender: FDA-Public Use
  Company Number: PT-FreseniusKabi-FK202214571

PATIENT
  Age: 77 Year
  Sex: Male

DRUGS (2)
  1. PACLITAXEL [Suspect]
     Active Substance: PACLITAXEL
     Indication: Lung adenocarcinoma
     Dosage: UNDERGOING CONCOMITANT QT (CARBOPLATIN + PACLITAXEL) + RT.
  2. CARBOPLATIN [Concomitant]
     Active Substance: CARBOPLATIN
     Indication: Lung adenocarcinoma
     Dosage: UNDERGOING CONCOMITANT QT (CARBOPLATIN + PACLITAXEL) + RT.

REACTIONS (1)
  - Hypersensitivity pneumonitis [Recovering/Resolving]
